FAERS Safety Report 7581793-1 (Version None)
Quarter: 2011Q2

REPORT INFORMATION
  Report Type: 
  Country: None (occurrence: None)
  Receive Date: 20110629
  Receipt Date: 20110620
  Transmission Date: 20111010
  Serious: Yes (Hospitalization, Other)
  Sender: FDA-Public Use
  Company Number: US-ASTRAZENECA-2011SE19950

PATIENT
  Age: 70 Year
  Sex: Female
  Weight: 108 kg

DRUGS (12)
  1. SYMBICORT [Suspect]
     Indication: ASTHMA
     Dosage: 160/4.5 MCG, 2 PUFFS DAILY
     Route: 055
     Dates: start: 20070806
  2. SYMBICORT [Suspect]
     Dosage: 160/4.5 MCG, 2 PUFFS BID
     Route: 055
  3. LASIX [Concomitant]
  4. PLENDIL [Concomitant]
  5. ZYRTEC [Concomitant]
  6. PROAIR HFA [Concomitant]
     Dosage: 2 PUFFS EVERY 4 HOURS PRN
  7. PREDNISONE [Concomitant]
     Route: 048
  8. POTASSIUM CHLORIDE [Concomitant]
  9. KLOR-CON [Concomitant]
     Route: 048
  10. PRILOSEC [Suspect]
     Route: 048
  11. MICARDIS [Concomitant]
  12. ESGIC-PLUS [Concomitant]
     Dosage: 50 MG 1-2 Q6H PRN

REACTIONS (19)
  - CEREBROVASCULAR ACCIDENT [None]
  - HYSTERECTOMY [None]
  - RHINITIS ALLERGIC [None]
  - TRANSIENT ISCHAEMIC ATTACK [None]
  - HYPERTENSION [None]
  - CONVERSION DISORDER [None]
  - CELLULITIS [None]
  - OSTEOARTHRITIS [None]
  - UPPER LIMB FRACTURE [None]
  - VITAMIN D DEFICIENCY [None]
  - HEADACHE [None]
  - KNEE ARTHROPLASTY [None]
  - ELBOW OPERATION [None]
  - GASTROOESOPHAGEAL REFLUX DISEASE [None]
  - ASTHENIA [None]
  - DRUG DEPENDENCE [None]
  - RENAL FAILURE [None]
  - POLYMYALGIA RHEUMATICA [None]
  - CATARACT OPERATION [None]
